FAERS Safety Report 4450655-0 (Version None)
Quarter: 2004Q3

REPORT INFORMATION
  Report Type: 
  Country: None (occurrence: None)
  Receive Date: 20040913
  Receipt Date: 20040608
  Transmission Date: 20050211
  Serious: No
  Sender: FDA-Public Use
  Company Number: 2004-BP-04494BP(0)

PATIENT
  Age: 70 Year
  Sex: Female

DRUGS (10)
  1. SPIRIVA [Suspect]
     Indication: ASTHMA
     Dosage: 18 MCG (18 MCG), IH
     Route: 055
     Dates: start: 20040520, end: 20040525
  2. ACEFAX [Concomitant]
  3. VIOXX [Concomitant]
  4. THEOPHYLLINE [Concomitant]
  5. HYZAAR [Concomitant]
  6. APRAZOLINE [Concomitant]
  7. LASIX [Concomitant]
  8. KCL (POTASSIUM CHLORIDE) [Concomitant]
  9. ALBUTEROL [Concomitant]
  10. ATROVENT [Concomitant]

REACTIONS (3)
  - DRY MOUTH [None]
  - PALPITATIONS [None]
  - TACHYCARDIA [None]
